FAERS Safety Report 19399614 (Version 4)
Quarter: 2021Q4

REPORT INFORMATION
  Report Type: Report from Study
  Country: CA (occurrence: CA)
  Receive Date: 20210610
  Receipt Date: 20211022
  Transmission Date: 20220303
  Serious: Yes (Other)
  Sender: FDA-Public Use
  Company Number: NVSC2021CA090736

PATIENT
  Age: 82 Year
  Sex: Female

DRUGS (3)
  1. ELTROMBOPAG OLAMINE [Suspect]
     Active Substance: ELTROMBOPAG OLAMINE
     Indication: Immune thrombocytopenia
     Dosage: 50 MG, QD
     Route: 048
  2. ELTROMBOPAG OLAMINE [Suspect]
     Active Substance: ELTROMBOPAG OLAMINE
     Dosage: 75 MG
     Route: 048
     Dates: start: 202106
  3. ELTROMBOPAG OLAMINE [Suspect]
     Active Substance: ELTROMBOPAG OLAMINE
     Dosage: UNK, QD
     Route: 048

REACTIONS (14)
  - Hyperhidrosis [Recovered/Resolved]
  - Loss of consciousness [Unknown]
  - Heart rate decreased [Unknown]
  - Platelet count abnormal [Unknown]
  - Feeling abnormal [Unknown]
  - Asthenia [Recovering/Resolving]
  - Head injury [Unknown]
  - Full blood count decreased [Unknown]
  - Sleep deficit [Unknown]
  - Fatigue [Recovered/Resolved]
  - Flatulence [Recovered/Resolved]
  - Sleep disorder [Recovered/Resolved]
  - Skin discolouration [Recovered/Resolved]
  - Peripheral swelling [Not Recovered/Not Resolved]

NARRATIVE: CASE EVENT DATE: 20210602
